FAERS Safety Report 6126462-X (Version None)
Quarter: 2009Q1

REPORT INFORMATION
  Report Type: 
  Country: None (occurrence: None)
  Receive Date: 20090320
  Receipt Date: 20090311
  Transmission Date: 20090719
  Serious: Yes (Hospitalization)
  Sender: FDA-Public Use
  Company Number: NO-WYE-G03315409

PATIENT

DRUGS (2)
  1. EFFEXOR [Suspect]
     Dosage: UNKNOWN
     Dates: end: 20090101
  2. VENLAFAXINE KRKA [Suspect]

REACTIONS (2)
  - CONVULSION [None]
  - FOAMING AT MOUTH [None]
